FAERS Safety Report 21391170 (Version 1)
Quarter: 2022Q3

REPORT INFORMATION
  Report Type: Spontaneous
  Country: US (occurrence: None)
  Receive Date: 20220928
  Receipt Date: 20220928
  Transmission Date: 20221027
  Serious: Yes (Hospitalization)
  Sender: FDA-Public Use
  Company Number: None

PATIENT
  Age: 79 Year
  Sex: Male
  Weight: 83.91 kg

DRUGS (2)
  1. APIXABAN [Suspect]
     Active Substance: APIXABAN
     Indication: Atrial fibrillation
     Dosage: FREQUENCY : TWICE A DAY;?
     Route: 048
     Dates: start: 20190710
  2. ASPIRIN [Suspect]
     Active Substance: ASPIRIN
     Indication: Cardiovascular disorder
     Dosage: FREQUENCY : DAILY;?
     Route: 048
     Dates: start: 20190730

REACTIONS (1)
  - Melaena [None]

NARRATIVE: CASE EVENT DATE: 20220904
